FAERS Safety Report 23301985 (Version 1)
Quarter: 2023Q4

REPORT INFORMATION
  Report Type: Other
  Country: CN (occurrence: CN)
  Receive Date: 20231215
  Receipt Date: 20231215
  Transmission Date: 20240110
  Serious: Yes (Other)
  Sender: FDA-Public Use
  Company Number: CN-GE HEALTHCARE-2023CSU011431

PATIENT
  Age: 80 Year
  Sex: Male
  Weight: 70 kg

DRUGS (4)
  1. OMNIPAQUE [Suspect]
     Active Substance: IOHEXOL
     Indication: Angiogram cerebral
     Dosage: 70 GM, SINGLE
     Route: 042
     Dates: start: 20231122, end: 20231122
  2. OMNIPAQUE [Suspect]
     Active Substance: IOHEXOL
     Indication: Carotid angioplasty
  3. OMNIPAQUE [Suspect]
     Active Substance: IOHEXOL
     Indication: Carotid artery stent insertion
  4. OMNIPAQUE [Suspect]
     Active Substance: IOHEXOL
     Indication: Cerebrovascular insufficiency

REACTIONS (7)
  - Gaze palsy [Recovering/Resolving]
  - Hyperpyrexia [Recovering/Resolving]
  - Hemiparesis [Recovering/Resolving]
  - Tachycardia [Recovering/Resolving]
  - Somnolence [Recovering/Resolving]
  - Altered state of consciousness [Recovering/Resolving]
  - Aphasia [Recovering/Resolving]

NARRATIVE: CASE EVENT DATE: 20231122
